FAERS Safety Report 6471078-9 (Version None)
Quarter: 2009Q4

REPORT INFORMATION
  Report Type: 
  Country: None (occurrence: None)
  Receive Date: 20091203
  Receipt Date: 20091124
  Transmission Date: 20100525
  Serious: Yes (Other)
  Sender: FDA-Public Use
  Company Number: US-WYE-H12316309

PATIENT
  Age: 23 Year
  Sex: Male

DRUGS (1)
  1. RELISTOR [Suspect]
     Dosage: UNKNOWN
     Route: 042
     Dates: start: 20091124, end: 20091124

REACTIONS (2)
  - HEART RATE INCREASED [None]
  - INCORRECT ROUTE OF DRUG ADMINISTRATION [None]
